FAERS Safety Report 5598380-7 (Version None)
Quarter: 2008Q1

REPORT INFORMATION
  Report Type: 
  Country: None (occurrence: None)
  Receive Date: 20080116
  Receipt Date: 20080108
  Transmission Date: 20080703
  Serious: Yes (Hospitalization)
  Sender: FDA-Public Use
  Company Number: 163-21880-07120347

PATIENT
  Age: 55 Year
  Sex: Female

DRUGS (10)
  1. REVLIMID [Suspect]
     Indication: MULTIPLE MYELOMA
     Dosage: 25 MG, 1 IN 1 D, ORAL
     Route: 048
     Dates: start: 20061208, end: 20071001
  2. REVLIMID [Suspect]
     Indication: MULTIPLE MYELOMA
     Dosage: 25 MG, 1 IN 1 D, ORAL
     Route: 048
     Dates: start: 20071206
  3. ASPIRIN [Concomitant]
  4. OXYCODONE HCL [Concomitant]
  5. LORAZEPAM [Concomitant]
  6. LASIX [Concomitant]
  7. NORVASC [Concomitant]
  8. QUININE (QUININE) [Concomitant]
  9. POTASSIUM CHLORIDE [Concomitant]
  10. DECADRON [Concomitant]

REACTIONS (2)
  - FRACTURE [None]
  - PANCREATITIS ACUTE [None]
